FAERS Safety Report 8544166-0 (Version None)
Quarter: 2012Q3

REPORT INFORMATION
  Report Type: 
  Country: None (occurrence: None)
  Receive Date: 20120727
  Receipt Date: 20120719
  Transmission Date: 20120928
  Serious: Yes (Other)
  Sender: FDA-Public Use
  Company Number: FR-TEVA-345937ISR

PATIENT
  Sex: Female

DRUGS (1)
  1. ATORVASTATIN [Suspect]
     Indication: HYPERCHOLESTEROLAEMIA
     Dosage: 10 MILLIGRAM;
     Dates: start: 20120608, end: 20120615

REACTIONS (5)
  - VERTIGO [None]
  - HEADACHE [None]
  - PALPITATIONS [None]
  - NAUSEA [None]
  - HYPERSENSITIVITY [None]
